FAERS Safety Report 9271964 (Version 7)
Quarter: 2017Q1

REPORT INFORMATION
  Report Type: Spontaneous
  Country: US (occurrence: US)
  Receive Date: 20130506
  Receipt Date: 20170328
  Transmission Date: 20170429
  Serious: Yes (Hospitalization, Other)
  Sender: FDA-Public Use
  Company Number: US-009507513-1204USA01003

PATIENT
  Sex: Female
  Weight: 59.86 kg

DRUGS (4)
  1. INSULIN, BIPHASIC ISOPHANE [INJECTION] [Concomitant]
     Active Substance: INSULIN HUMAN
     Indication: DIABETES MELLITUS
     Dosage: 15 UNITS QAM/80 UNITS QPM
     Route: 058
  2. ALENDRONATE SODIUM. [Suspect]
     Active Substance: ALENDRONATE SODIUM
     Route: 048
  3. FOSAMAX [Suspect]
     Active Substance: ALENDRONATE SODIUM
     Indication: OSTEOPOROSIS
     Dosage: 70 MG, UNK
     Route: 048
     Dates: start: 20010101, end: 20100308
  4. INSULIN [Concomitant]
     Active Substance: INSULIN NOS
     Indication: DIABETES MELLITUS
     Dosage: UNK
     Route: 065
     Dates: start: 1989

REACTIONS (39)
  - Open reduction of fracture [Unknown]
  - Haemoglobin abnormal [Unknown]
  - Osteoarthritis [Unknown]
  - Cataract operation [Unknown]
  - Low turnover osteopathy [Unknown]
  - Condition aggravated [Unknown]
  - Hypertension [Unknown]
  - Upper respiratory tract infection [Unknown]
  - Haematocrit abnormal [Unknown]
  - Joint dislocation [Not Recovered/Not Resolved]
  - Vascular calcification [Unknown]
  - Syncope [Unknown]
  - Haemoglobin decreased [Unknown]
  - Adenoidectomy [Unknown]
  - Platelet count increased [Recovered/Resolved]
  - Dental caries [Unknown]
  - Osteopenia [Unknown]
  - Hysterectomy [Unknown]
  - White blood cell count increased [Unknown]
  - Joint dislocation reduction [Unknown]
  - Toothache [Unknown]
  - Tooth fracture [Unknown]
  - Femur fracture [Unknown]
  - Intramedullary rod insertion [Unknown]
  - Femur fracture [Unknown]
  - Joint dislocation [Unknown]
  - Blood urea increased [Unknown]
  - Tonsillectomy [Unknown]
  - Hyponatraemia [Unknown]
  - Spinal osteoarthritis [Unknown]
  - Aortic calcification [Unknown]
  - Fall [Unknown]
  - Lymphocyte count decreased [Unknown]
  - Complication associated with device [Unknown]
  - Humerus fracture [Unknown]
  - Haematocrit decreased [Unknown]
  - Cataract [Unknown]
  - Diabetes mellitus inadequate control [Unknown]
  - Osteoarthritis [Unknown]

NARRATIVE: CASE EVENT DATE: 200712
